FAERS Safety Report 25168390 (Version 1)
Quarter: 2025Q2

REPORT INFORMATION
  Report Type: Spontaneous
  Country: CA (occurrence: CA)
  Receive Date: 20250407
  Receipt Date: 20250407
  Transmission Date: 20250716
  Serious: No
  Sender: ACERUS PHARMACEUTICALS CORPORATION
  Company Number: CA-ACERUSPHRM-2025-CA-000180

PATIENT
  Sex: Male
  Weight: 90.72 kg

DRUGS (1)
  1. NATESTO [Suspect]
     Active Substance: TESTOSTERONE
     Indication: Product used for unknown indication
     Route: 065

REACTIONS (1)
  - Blood iron decreased [Unknown]
